FAERS Safety Report 24742422 (Version 1)
Quarter: 2024Q4

REPORT INFORMATION
  Report Type: Spontaneous
  Country: US (occurrence: US)
  Receive Date: 20241217
  Receipt Date: 20241217
  Transmission Date: 20250115
  Serious: Yes (Life-Threatening, Hospitalization, Other)
  Sender: SANDOZ
  Company Number: US-SANDOZ-SDZ2024US102640

PATIENT
  Age: 71 Year
  Sex: Male
  Weight: 115.1 kg

DRUGS (21)
  1. CARBOPLATIN [Suspect]
     Active Substance: CARBOPLATIN
     Dosage: 740 AUC, Q3W
     Route: 042
     Dates: start: 20210128, end: 20210128
  2. CARBOPLATIN [Suspect]
     Active Substance: CARBOPLATIN
     Indication: Mesothelioma malignant
     Dosage: 750 AUC, Q3W
     Route: 042
     Dates: start: 20201103, end: 20201103
  3. CARBOPLATIN [Suspect]
     Active Substance: CARBOPLATIN
     Dosage: 750 AUC, Q3W
     Route: 042
     Dates: start: 20201124, end: 20201124
  4. CARBOPLATIN [Suspect]
     Active Substance: CARBOPLATIN
     Dosage: 750 AUC,Q3W
     Route: 042
     Dates: start: 20210105, end: 20210105
  5. OZEKIBART [Suspect]
     Active Substance: OZEKIBART
     Indication: Mesothelioma malignant
     Dosage: 11.5 MG, Q3W
     Route: 042
     Dates: start: 20201103, end: 20201103
  6. OZEKIBART [Suspect]
     Active Substance: OZEKIBART
     Dosage: 113.75 MG, Q3W
     Route: 042
     Dates: start: 20201124, end: 20201124
  7. OZEKIBART [Suspect]
     Active Substance: OZEKIBART
     Dosage: 300 MG, Q3W
     Route: 042
     Dates: start: 20210128, end: 20210128
  8. OZEKIBART [Suspect]
     Active Substance: OZEKIBART
     Dosage: 340 MG, Q3W
     Route: 042
     Dates: start: 20210105, end: 20210105
  9. APIXABAN [Concomitant]
     Active Substance: APIXABAN
     Indication: Product used for unknown indication
     Dosage: UNK
     Route: 065
     Dates: start: 20210217
  10. DILTIAZEM [Concomitant]
     Active Substance: DILTIAZEM
     Indication: Product used for unknown indication
     Dosage: UNK
     Route: 065
     Dates: start: 20160220
  11. FLECAINIDE ACETATE [Concomitant]
     Active Substance: FLECAINIDE ACETATE
     Indication: Product used for unknown indication
     Dosage: UNK
     Route: 065
     Dates: start: 20160311
  12. K PHOS NEUTRAL [Concomitant]
     Active Substance: POTASSIUM PHOSPHATE, MONOBASIC\SODIUM PHOSPHATE, DIBASIC, ANHYDROUS\SODIUM PHOSPHATE, MONOBASIC, MON
     Indication: Product used for unknown indication
     Dosage: UNK
     Route: 065
     Dates: start: 20201209
  13. LIDOCAINE\PRILOCAINE [Concomitant]
     Active Substance: LIDOCAINE\PRILOCAINE
     Indication: Product used for unknown indication
     Dosage: UNK
     Route: 065
     Dates: start: 201710
  14. LORAZEPAM [Concomitant]
     Active Substance: LORAZEPAM
     Indication: Product used for unknown indication
     Dosage: UNK
     Route: 065
     Dates: start: 20171024
  15. LOSARTAN [Concomitant]
     Active Substance: LOSARTAN
     Indication: Product used for unknown indication
     Dosage: UNK
     Route: 065
     Dates: start: 20170929
  16. ONDANSETRON [Concomitant]
     Active Substance: ONDANSETRON
     Indication: Product used for unknown indication
     Dosage: UNK
     Route: 065
     Dates: start: 20170928
  17. OXYCODONE [Concomitant]
     Active Substance: OXYCODONE
     Indication: Product used for unknown indication
     Dosage: UNK
     Route: 065
     Dates: start: 20210128
  18. POTASSIUM CHLORIDE [Concomitant]
     Active Substance: POTASSIUM CHLORIDE
     Indication: Product used for unknown indication
     Dosage: UNK
     Route: 065
     Dates: start: 2017
  19. PROCHLORPERAZINE [Concomitant]
     Active Substance: PROCHLORPERAZINE
     Indication: Product used for unknown indication
     Dosage: UNK
     Route: 065
     Dates: start: 20190611
  20. VANCOMYCIN [Concomitant]
     Active Substance: VANCOMYCIN
     Indication: Product used for unknown indication
     Dosage: UNK
     Route: 065
     Dates: start: 20201209
  21. WARFARIN [Concomitant]
     Active Substance: WARFARIN
     Indication: Product used for unknown indication
     Dosage: UNK
     Route: 065
     Dates: start: 20160130

REACTIONS (7)
  - Respiratory failure [Not Recovered/Not Resolved]
  - Thrombocytopenia [Recovered/Resolved]
  - Anaemia [Not Recovered/Not Resolved]
  - Compression fracture [Unknown]
  - Fall [Unknown]
  - Oedema [Unknown]
  - Petechiae [Unknown]

NARRATIVE: CASE EVENT DATE: 20210329
